FAERS Safety Report 9475833 (Version 1)
Quarter: 2013Q3

REPORT INFORMATION
  Report Type: Spontaneous
  Country: US (occurrence: None)
  Receive Date: 20130821
  Receipt Date: 20130821
  Transmission Date: 20140515
  Serious: No
  Sender: FDA-Public Use
  Company Number: GAM-198-13-US

PATIENT
  Age: 53 Year
  Sex: Male

DRUGS (1)
  1. OCTAGAM [Suspect]
     Indication: POLYMYOSITIS
     Dosage: CYCLICAL
     Dates: start: 20130619, end: 20130619

REACTIONS (1)
  - Chest discomfort [None]
